FAERS Safety Report 7506652-1 (Version None)
Quarter: 2011Q2

REPORT INFORMATION
  Report Type: 
  Country: None (occurrence: None)
  Receive Date: 20110412
  Receipt Date: 20101223
  Transmission Date: 20111010
  Serious: Yes (Hospitalization)
  Sender: FDA-Public Use
  Company Number: 2010027227

PATIENT
  Sex: Female
  Weight: 76.2043 kg

DRUGS (41)
  1. CELLCEPT [Concomitant]
  2. TYLENOL XL (PARACETAMOL) [Concomitant]
  3. SYNTHROID [Concomitant]
  4. FERROUS GLUCONATE (FERROUS GLUCONATE) [Concomitant]
  5. CLONIDINE [Concomitant]
  6. EPOGEN [Concomitant]
  7. ASTELIN (DIPROPHYLLINE) [Concomitant]
  8. ZYRTEC [Concomitant]
  9. ZEMPLAR [Concomitant]
  10. VITAMIN D [Concomitant]
  11. SYSTANE (SYSTANE) [Concomitant]
  12. PRE-NATAL PLUS (PRENATAL) [Concomitant]
  13. RHINOCORT [Concomitant]
  14. METANX (MVI) [Concomitant]
  15. TUMS XL (TUMS) [Concomitant]
  16. VITAMIN D [Concomitant]
  17. TORSEMIDE [Concomitant]
  18. LYRICA [Concomitant]
  19. SYMBICORT [Concomitant]
  20. HYOSCYAMINE (HYOSCYAMINE) [Concomitant]
  21. HIZENTRA [Suspect]
     Indication: IMMUNODEFICIENCY COMMON VARIABLE
     Dosage: 8 G 1X/WEEK, 40 ML WEEKLY IN 3 SITES SUBCUTANEOUS
     Route: 058
     Dates: end: 20101201
  22. COREG [Concomitant]
  23. BENTYL [Concomitant]
  24. MAG-OX (MAGNESIUM OXIDE) [Concomitant]
  25. PROGRAF [Concomitant]
  26. REGLAN [Concomitant]
  27. TRAVATAN [Concomitant]
  28. PATANOL [Concomitant]
  29. TRAMADOL HCL [Concomitant]
  30. NOVOLOG [Concomitant]
  31. UNIFIBER (CYAMOPSIS TETRAGONOLOBA GUM) [Concomitant]
  32. PREDNISONE [Concomitant]
  33. TRAZODONE HCL [Concomitant]
  34. DEPAKOTE [Concomitant]
  35. ASPIRIN [Concomitant]
  36. MUCINEX D (GUAIFENESIN) [Concomitant]
  37. ALPRAZOLAM [Concomitant]
  38. FLEXERIL [Concomitant]
  39. IMODIUM [Concomitant]
  40. NEXIUM [Concomitant]
  41. WELCHOL [Concomitant]

REACTIONS (1)
  - RENAL FAILURE [None]
